FAERS Safety Report 8363223-5 (Version None)
Quarter: 2012Q2

REPORT INFORMATION
  Report Type: 
  Country: None (occurrence: None)
  Receive Date: 20120516
  Receipt Date: 20120511
  Transmission Date: 20120825
  Serious: Yes (Hospitalization, Other)
  Sender: FDA-Public Use
  Company Number: GB-PFIZER INC-2012077131

PATIENT
  Age: 25 Year
  Sex: Male

DRUGS (1)
  1. PREGABALIN [Suspect]
     Indication: EPILEPSY
     Dosage: 300 MG, 2X/DAY
     Route: 048
     Dates: start: 20070101, end: 20120319

REACTIONS (2)
  - MYALGIA [None]
  - RHABDOMYOLYSIS [None]
